FAERS Safety Report 10529328 (Version 1)
Quarter: 2014Q4

REPORT INFORMATION
  Report Type: Spontaneous
  Country: CA (occurrence: CA)
  Receive Date: 20141021
  Receipt Date: 20141021
  Transmission Date: 20150528
  Serious: Yes (Hospitalization, Other)
  Sender: FDA-Public Use
  Company Number: CA-ROCHE-1470925

PATIENT
  Age: 36 Year
  Sex: Female

DRUGS (17)
  1. RIBAVIRIN. [Interacting]
     Active Substance: RIBAVIRIN
     Indication: PRODUCT USED FOR UNKNOWN INDICATION
     Route: 065
  2. VICTRELIS [Interacting]
     Active Substance: BOCEPREVIR
     Indication: PRODUCT USED FOR UNKNOWN INDICATION
     Route: 065
  3. PEGINTERFERON ALFA-2B [Interacting]
     Active Substance: PEGINTERFERON ALFA-2B
     Route: 065
  4. PEGINTERFERON ALFA-2B/RIBAVIRIN [Interacting]
     Active Substance: PEGINTERFERON ALFA-2B\RIBAVIRIN
     Indication: PRODUCT USED FOR UNKNOWN INDICATION
     Route: 065
  5. TACROLIMUS. [Interacting]
     Active Substance: TACROLIMUS
     Route: 065
  6. PROGRAF [Interacting]
     Active Substance: TACROLIMUS\TACROLIMUS ANHYDROUS
     Route: 065
  7. INTRON A [Interacting]
     Active Substance: INTERFERON ALFA-2B
     Indication: PRODUCT USED FOR UNKNOWN INDICATION
     Route: 065
  8. MYCOPHENOLATE MOFETIL. [Suspect]
     Active Substance: MYCOPHENOLATE MOFETIL
     Indication: PRODUCT USED FOR UNKNOWN INDICATION
     Route: 065
  9. PEGASYS [Interacting]
     Active Substance: PEGINTERFERON ALFA-2A
     Indication: PRODUCT USED FOR UNKNOWN INDICATION
     Route: 065
  10. PEGINTERFERON ALFA-2B [Interacting]
     Active Substance: PEGINTERFERON ALFA-2B
     Indication: PRODUCT USED FOR UNKNOWN INDICATION
     Route: 065
  11. PROGRAF [Interacting]
     Active Substance: TACROLIMUS\TACROLIMUS ANHYDROUS
     Indication: PRODUCT USED FOR UNKNOWN INDICATION
     Route: 065
  12. PROGRAF [Interacting]
     Active Substance: TACROLIMUS\TACROLIMUS ANHYDROUS
     Route: 065
  13. WARFARIN [Concomitant]
     Active Substance: WARFARIN
     Route: 065
  14. TACROLIMUS. [Interacting]
     Active Substance: TACROLIMUS
     Route: 065
  15. PEGINTERFERON ALFA-2B/RIBAVIRIN [Interacting]
     Active Substance: PEGINTERFERON ALFA-2B\RIBAVIRIN
     Route: 065
  16. VICTRELIS TRIPLE [Interacting]
     Active Substance: BOCEPREVIR\PEGINTERFERON ALFA-2B\RIBAVIRIN
     Indication: PRODUCT USED FOR UNKNOWN INDICATION
     Dosage: BOCEPREVIR CAPSULE 200MG; RIBAVIRIN CAPSULE 200MG; PEGINTERFERON ALFA-2B, POWDER FOR SOLUTION
     Route: 065
  17. TACROLIMUS. [Interacting]
     Active Substance: TACROLIMUS
     Indication: PRODUCT USED FOR UNKNOWN INDICATION
     Route: 065

REACTIONS (13)
  - Hepatitis C [Unknown]
  - Drug ineffective [Unknown]
  - Ascites [Unknown]
  - Jaundice [Unknown]
  - Drug level increased [Unknown]
  - Neutropenia [Unknown]
  - Hepatitis cholestatic [Unknown]
  - Liver transplant [Unknown]
  - Anaemia [Unknown]
  - Drug interaction [Unknown]
  - Renal impairment [Unknown]
  - Hepatic enzyme increased [Unknown]
  - Hepatic function abnormal [Unknown]
